FAERS Safety Report 13006035 (Version 1)
Quarter: 2016Q4

REPORT INFORMATION
  Report Type: Spontaneous
  Country: US (occurrence: US)
  Receive Date: 20161206
  Receipt Date: 20161206
  Transmission Date: 20170207
  Serious: Yes (Life-Threatening, Hospitalization)
  Sender: FDA-Public Use
  Company Number: None

PATIENT
  Age: 47 Year
  Sex: Male
  Weight: 101 kg

DRUGS (5)
  1. LIDOCAINE. [Concomitant]
     Active Substance: LIDOCAINE
  2. ISOVUE 370 [Suspect]
     Active Substance: IOPAMIDOL
     Indication: CATHETERISATION CARDIAC
     Dosage: ?          OTHER FREQUENCY:TOTAL/ 1 PROCEDURE;?140 ML MILLITRE(S)  INTRACORONARY?
     Route: 022
     Dates: start: 20160829, end: 20160829
  3. HEPARIN [Concomitant]
     Active Substance: HEPARIN SODIUM
  4. MORPHINE [Concomitant]
     Active Substance: MORPHINE
  5. VERSED [Concomitant]
     Active Substance: MIDAZOLAM HYDROCHLORIDE

REACTIONS (9)
  - Hypotension [None]
  - Dyspnoea [None]
  - Anxiety [None]
  - Swelling face [None]
  - Listless [None]
  - Anaphylactic reaction [None]
  - Contrast media reaction [None]
  - Periorbital oedema [None]
  - Device occlusion [None]

NARRATIVE: CASE EVENT DATE: 20160829
